FAERS Safety Report 25353215 (Version 2)
Quarter: 2025Q2

REPORT INFORMATION
  Report Type: Spontaneous
  Country: BR (occurrence: BR)
  Receive Date: 20250523
  Receipt Date: 20250609
  Transmission Date: 20250716
  Serious: Yes (Hospitalization)
  Sender: ELI LILLY AND COMPANY
  Company Number: BR-ELI_LILLY_AND_COMPANY-BR202505014005

PATIENT
  Age: 79 Year
  Sex: Female
  Weight: 58 kg

DRUGS (1)
  1. ABEMACICLIB [Suspect]
     Active Substance: ABEMACICLIB
     Indication: Breast cancer
     Dosage: 100 MG, BID
     Route: 048
     Dates: start: 202408

REACTIONS (1)
  - Influenza [Recovered/Resolved]
